FAERS Safety Report 5276277-X (Version None)
Quarter: 2007Q1

REPORT INFORMATION
  Report Type: 
  Country: None (occurrence: None)
  Receive Date: 20070326
  Receipt Date: 20070314
  Transmission Date: 20070707
  Serious: Yes (Hospitalization, Other)
  Sender: FDA-Public Use
  Company Number: US-PFIZER INC-2007012287

PATIENT
  Sex: Male
  Weight: 97.5 kg

DRUGS (1)
  1. SUTENT [Suspect]
     Indication: RENAL CELL CARCINOMA STAGE IV
     Route: 048
     Dates: start: 20070104, end: 20070116

REACTIONS (13)
  - BLOOD CREATININE INCREASED [None]
  - DIARRHOEA [None]
  - DRUG TOXICITY [None]
  - DYSGEUSIA [None]
  - HEADACHE [None]
  - MUCOUS STOOLS [None]
  - PAIN OF SKIN [None]
  - PYREXIA [None]
  - RASH [None]
  - RENAL FAILURE [None]
  - SWELLING [None]
  - VISION BLURRED [None]
  - WHITE BLOOD CELL COUNT DECREASED [None]
